FAERS Safety Report 9391820 (Version 1)
Quarter: 2013Q3

REPORT INFORMATION
  Report Type: Spontaneous
  Country: US (occurrence: None)
  Receive Date: 20130705
  Receipt Date: 20130705
  Transmission Date: 20140515
  Serious: Yes (Hospitalization)
  Sender: FDA-Public Use
  Company Number: 1790100

PATIENT
  Age: 1 Year
  Sex: Male
  Weight: 10 kg

DRUGS (15)
  1. DEXMEDETOMIDINE HYDROCHLORIDE [Suspect]
     Indication: DRUG WITHDRAWAL MAINTENANCE THERAPY
     Dosage: 0.5 MG/KG/HR
     Route: 041
  2. DEXMEDETOMIDINE HYDROCHLORIDE [Suspect]
     Indication: EXTUBATION
     Dosage: 0.5 MG/KG/HR
     Route: 041
  3. DEXMEDETOMIDINE HYDROCHLORIDE [Suspect]
     Indication: DRUG WITHDRAWAL MAINTENANCE THERAPY
     Dosage: 0.5 MG/KG/HR
     Route: 041
  4. DEXMEDETOMIDINE HYDROCHLORIDE [Suspect]
     Indication: EXTUBATION
     Dosage: 0.5 MG/KG/HR
     Route: 041
  5. CLONIDINE [Suspect]
     Indication: DRUG WITHDRAWAL MAINTENANCE THERAPY
     Route: 048
  6. CLONIDINE [Suspect]
     Indication: EXTUBATION
     Route: 048
  7. CLONIDINE [Suspect]
     Indication: DRUG WITHDRAWAL MAINTENANCE THERAPY
     Route: 048
  8. CLONIDINE [Suspect]
     Indication: EXTUBATION
     Route: 048
  9. FENTANYL [Concomitant]
  10. MORPHINE [Concomitant]
  11. KETAMINE [Concomitant]
  12. LORAZEPAM [Concomitant]
  13. METHADONE [Concomitant]
  14. VECURONIUM [Concomitant]
  15. DEXAMETHASONE [Concomitant]

REACTIONS (5)
  - Adrenal insufficiency [None]
  - Stridor [None]
  - Lethargy [None]
  - Hypotension [None]
  - Tachycardia [None]
